FAERS Safety Report 5235222-3 (Version None)
Quarter: 2007Q1

REPORT INFORMATION
  Report Type: 
  Country: None (occurrence: None)
  Receive Date: 20070208
  Receipt Date: 20070208
  Transmission Date: 20070707
  Serious: Yes (Hospitalization)
  Sender: FDA-Public Use
  Company Number: None

PATIENT
  Age: 55 Year
  Sex: Male

DRUGS (9)
  1. NAPROXEN [Suspect]
  2. PREDNISONE [Suspect]
     Indication: RHEUMATOID ARTHRITIS
     Dates: start: 19950623, end: 20070207
  3. ACETAMINOPHEN W/ CODEINE TAB [Concomitant]
  4. BUTALBITAL/ACETAMINOPHEN/CAFFEIN [Concomitant]
  5. ENALAPRIL MALEATE [Concomitant]
  6. HYDROCHLOROTHIAZIDE [Concomitant]
  7. HYDROXYCHLOROQUINE SULFATE [Concomitant]
  8. METHOTREXATE NA [Concomitant]
  9. PREDNISONE [Concomitant]

REACTIONS (6)
  - DIZZINESS [None]
  - HAEMATEMESIS [None]
  - HAEMATOCRIT DECREASED [None]
  - MELAENA [None]
  - NAUSEA [None]
  - VOMITING [None]
